FAERS Safety Report 8584964-0 (Version None)
Quarter: 2012Q3

REPORT INFORMATION
  Report Type: 
  Country: None (occurrence: None)
  Receive Date: 20120810
  Receipt Date: 20120731
  Transmission Date: 20120928
  Serious: Yes (Life-Threatening, Hospitalization, Other)
  Sender: FDA-Public Use
  Company Number: US-BAYER-2012-078677

PATIENT
  Age: 43 Year
  Sex: Female
  Weight: 60 kg

DRUGS (16)
  1. CITRUCEL [Concomitant]
     Dosage: 1000 MG, UNK
  2. AZITHROMYCIN [Concomitant]
     Dosage: 250 MG, UNK
     Dates: start: 20091012
  3. ACETAMINOPHEN W/ PROPOXYPHENE HCL [Concomitant]
     Dosage: 100-650
     Dates: start: 20091111
  4. METRONIDAZOLE [Concomitant]
     Dosage: 500 MG, UNK
     Dates: start: 20090923
  5. YAZ [Suspect]
  6. PRILOSEC [Concomitant]
     Dosage: 20 MG, UNK
  7. DIOVAN HCT [Concomitant]
     Dosage: 160/12.5 MG
  8. ZOLPIDEM TARTRATE [Concomitant]
     Dosage: 10 MG, UNK
     Dates: start: 20091024
  9. TUSSIONEX [Concomitant]
     Dosage: UNK
     Dates: start: 20091012
  10. PROMETHAZINE [Concomitant]
     Dosage: 25 MG, UNK
     Dates: start: 20091111
  11. IPRATROPIUM BROMIDE [Concomitant]
     Dosage: 0.06 UNK, UNK
     Dates: start: 20090926
  12. DROSPIRENONE AND ETHINYL ESTRADIOL [Suspect]
  13. ALPRAZOLAM [Concomitant]
     Dosage: 0.5 MG, UNK
  14. POTASSIUM CHLORIDE [Concomitant]
     Dosage: 10 MEQ, UNK
     Dates: start: 20091026
  15. AMBIEN [Concomitant]
     Dosage: 10 MG, HS
  16. OXYCODONE AND ACETAMINOPHEN [Concomitant]
     Dosage: 5-325
     Dates: start: 20091111

REACTIONS (2)
  - PULMONARY EMBOLISM [None]
  - CHOLELITHIASIS [None]
